FAERS Safety Report 13815368 (Version 1)
Quarter: 2017Q3

REPORT INFORMATION
  Report Type: Spontaneous
  Country: US (occurrence: US)
  Receive Date: 20170731
  Receipt Date: 20170731
  Transmission Date: 20171127
  Serious: Yes (Hospitalization, Other)
  Sender: FDA-Public Use
  Company Number: None

PATIENT
  Sex: Female
  Weight: 68.4 kg

DRUGS (12)
  1. CRESTOR [Concomitant]
     Active Substance: ROSUVASTATIN CALCIUM
  2. ALPRAZOLAM. [Concomitant]
     Active Substance: ALPRAZOLAM
  3. COQ 10 [Concomitant]
     Active Substance: UBIDECARENONE
  4. SYMBICORT [Suspect]
     Active Substance: BUDESONIDE\FORMOTEROL FUMARATE DIHYDRATE
     Indication: PRODUCTIVE COUGH
     Dosage: ?          OTHER STRENGTH:MCG60;QUANTITY:1 PUFF(S);?
     Route: 055
     Dates: start: 20170626, end: 20170627
  5. ASPIRN [Concomitant]
     Active Substance: ASPIRIN
  6. VITAMIN B12 [Concomitant]
     Active Substance: CYANOCOBALAMIN
  7. PLAVIX (CLOPIDGREL BISULFATE) [Concomitant]
  8. SYNTHROID [Concomitant]
     Active Substance: LEVOTHYROXINE SODIUM
  9. VENLAFAXINE HCL [Concomitant]
     Active Substance: VENLAFAXINE HYDROCHLORIDE
  10. CALCIUM PLUS VIT D3 [Concomitant]
  11. LOSARTAN POTASSIUM. [Concomitant]
     Active Substance: LOSARTAN POTASSIUM
  12. VITAMIN D3 [Concomitant]
     Active Substance: CHOLECALCIFEROL

REACTIONS (8)
  - Chest pain [None]
  - Oropharyngeal pain [None]
  - Bronchitis [None]
  - Cough [None]
  - Lymphadenopathy [None]
  - Coronary arterial stent insertion [None]
  - Cold sweat [None]
  - Nausea [None]

NARRATIVE: CASE EVENT DATE: 20170627
